FAERS Safety Report 7163233 (Version 2)
Quarter: 2019Q1

REPORT INFORMATION
  Report Type: Spontaneous
  Country: GB (occurrence: GB)
  Receive Date: 20091030
  Receipt Date: 20190219
  Transmission Date: 20190418
  Serious: Yes (Other)
  Sender: FDA-Public Use
  Company Number: GB-PFIZER INC-2009284937

PATIENT
  Age: 45 Year
  Sex: Female
  Weight: 54 kg

DRUGS (2)
  1. CHAMPIX [Suspect]
     Active Substance: VARENICLINE TARTRATE
     Dosage: 1 MG, 2X/DAY
     Route: 048
     Dates: end: 20090819
  2. CHAMPIX [Suspect]
     Active Substance: VARENICLINE TARTRATE
     Indication: SMOKING CESSATION THERAPY
     Dosage: STARTER PACK
     Route: 048
     Dates: start: 20090810

REACTIONS (4)
  - Feelings of worthlessness [Recovering/Resolving]
  - Disturbance in attention [Recovering/Resolving]
  - Feeling abnormal [Recovering/Resolving]
  - Abnormal sensation in eye [Recovering/Resolving]

NARRATIVE: CASE EVENT DATE: 20090814
